FAERS Safety Report 4353446-4 (Version None)
Quarter: 2004Q2

REPORT INFORMATION
  Report Type: 
  Country: None (occurrence: None)
  Receive Date: 20040505
  Receipt Date: 20040505
  Transmission Date: 20050107
  Serious: Yes (Hospitalization)
  Sender: FDA-Public Use
  Company Number: None

PATIENT
  Age: 85 Year
  Sex: Male
  Weight: 93 kg

DRUGS (11)
  1. METOLAZONE [Suspect]
     Indication: OEDEMA
     Dosage: 2.5 MG 2X ORAL
     Route: 048
  2. FUROSEMIDE [Suspect]
  3. AMIODARONE HCL (GENEVA) [Concomitant]
  4. POLYETHYLENE GLYCOL [Concomitant]
  5. METOPROLOL TARTRATE [Concomitant]
  6. ISOSORBIDE MONONITRATE [Concomitant]
  7. MILK OF MAGNESIA TAB [Concomitant]
  8. METOLAZONE [Concomitant]
  9. NITROGLYCERIN [Concomitant]
  10. ACETAMINOPHEN [Concomitant]
  11. CEFUROXINE AXETIL [Concomitant]

REACTIONS (2)
  - DIZZINESS [None]
  - HYPONATRAEMIA [None]
